FAERS Safety Report 11307801 (Version 6)
Quarter: 2016Q1

REPORT INFORMATION
  Report Type: Report from Study
  Country: DE (occurrence: DE)
  Receive Date: 20150724
  Receipt Date: 20160303
  Transmission Date: 20160525
  Serious: Yes (Death, Other)
  Sender: FDA-Public Use
  Company Number: DE-ROCHE-1495718

PATIENT

DRUGS (3)
  1. RIBAVIRIN. [Suspect]
     Active Substance: RIBAVIRIN
     Indication: CHRONIC HEPATITIS C
     Route: 048
  2. DACLATASVIR. [Suspect]
     Active Substance: DACLATASVIR
     Indication: CHRONIC HEPATITIS C
     Route: 048
  3. SOFOSBUVIR [Suspect]
     Active Substance: SOFOSBUVIR
     Indication: CHRONIC HEPATITIS C
     Route: 048

REACTIONS (18)
  - Vertigo [Unknown]
  - Hypersensitivity vasculitis [Unknown]
  - Myocardial infarction [Fatal]
  - Renal failure [Unknown]
  - Drug withdrawal syndrome [Unknown]
  - Nausea [Unknown]
  - Fluid overload [Unknown]
  - Acute kidney injury [Unknown]
  - Hepatic failure [Unknown]
  - Arthralgia [Unknown]
  - Hepatocellular carcinoma [Unknown]
  - Peritonitis [Unknown]
  - Multiple organ dysfunction syndrome [Fatal]
  - General physical health deterioration [Unknown]
  - Soft tissue infection [Unknown]
  - Syncope [Unknown]
  - Hepatic encephalopathy [Unknown]
  - Pneumonia [Unknown]
